FAERS Safety Report 9332370 (Version 2)
Quarter: 2013Q2

REPORT INFORMATION
  Report Type: Report from Study
  Country: US (occurrence: US)
  Receive Date: 20130606
  Receipt Date: 20130625
  Transmission Date: 20140414
  Serious: Yes (Other)
  Sender: FDA-Public Use
  Company Number: PHEH2013US012253

PATIENT
  Age: 70 Year
  Sex: Female

DRUGS (2)
  1. GLEEVEC [Suspect]
     Indication: SYSTEMIC MASTOCYTOSIS
     Dosage: 2 TABLETS ONCE DAILY (200 MG)
     Route: 048
     Dates: start: 20121107
  2. GLEEVEC [Suspect]
     Dosage: 4 TABLETS ONCE DAILY (400 MG)
     Route: 048

REACTIONS (4)
  - Ulcer haemorrhage [Recovered/Resolved]
  - Eye swelling [Recovered/Resolved]
  - Nausea [Recovered/Resolved]
  - Myalgia [Recovered/Resolved]
